FAERS Safety Report 18178560 (Version 1)
Quarter: 2020Q3

REPORT INFORMATION
  Report Type: Report from Study
  Country: US (occurrence: US)
  Receive Date: 20200821
  Receipt Date: 20200821
  Transmission Date: 20201103
  Serious: Yes (Death, Hospitalization, Other)
  Sender: FDA-Public Use
  Company Number: US-AUROBINDO-09-AUR-10508

PATIENT
  Age: 62 Year
  Sex: Female

DRUGS (3)
  1. TROGLITAZONE [Suspect]
     Active Substance: TROGLITAZONE
     Indication: TYPE 2 DIABETES MELLITUS
     Dosage: 600 MILLIGRAM, DAILY
     Route: 065
  2. TROGLITAZONE [Suspect]
     Active Substance: TROGLITAZONE
     Dosage: 400 MILLIGRAM
     Route: 066
  3. METFORMIN HYDROCHLORIDE TABLETS USP 500 MG [Suspect]
     Active Substance: METFORMIN HYDROCHLORIDE
     Indication: TYPE 2 DIABETES MELLITUS
     Dosage: UNK
     Route: 065

REACTIONS (12)
  - Death [Fatal]
  - Hepatic failure [Fatal]
  - Pulmonary oedema [Fatal]
  - Acute kidney injury [Fatal]
  - Cardiac arrest [Fatal]
  - Acidosis [Fatal]
  - Pneumonia [Fatal]
  - Cardiomegaly [Fatal]
  - Respiratory failure [Fatal]
  - Blood lactic acid increased [Fatal]
  - Transaminases increased [Fatal]
  - Pleural effusion [Fatal]
